FAERS Safety Report 5523569-2 (Version None)
Quarter: 2007Q4

REPORT INFORMATION
  Report Type: 
  Country: None (occurrence: None)
  Receive Date: 20071121
  Receipt Date: 20071114
  Transmission Date: 20080405
  Serious: Yes (Hospitalization, Other)
  Sender: FDA-Public Use
  Company Number: BE-ROCHE-531963

PATIENT
  Age: 55 Year
  Sex: Female

DRUGS (3)
  1. BONIVA [Suspect]
     Indication: DRUG USE FOR UNKNOWN INDICATION
     Route: 048
     Dates: start: 20071001, end: 20071101
  2. CALCIUM [Concomitant]
     Dates: start: 20071001, end: 20071101
  3. ISOTEN [Concomitant]

REACTIONS (2)
  - MALAISE [None]
  - PALPITATIONS [None]
